FAERS Safety Report 24202258 (Version 1)
Quarter: 2024Q3

REPORT INFORMATION
  Report Type: Report from Study
  Country: CA (occurrence: CA)
  Receive Date: 20240812
  Receipt Date: 20240812
  Transmission Date: 20241017
  Serious: Yes (Other)
  Sender: TAKEDA
  Company Number: CA-TAKEDA-2023TUS002549

PATIENT
  Sex: Female

DRUGS (2)
  1. IXAZOMIB [Suspect]
     Active Substance: IXAZOMIB
     Indication: Plasma cell myeloma
     Dosage: 3 MILLIGRAM
     Route: 048
     Dates: start: 20230104
  2. IXAZOMIB [Suspect]
     Active Substance: IXAZOMIB
     Dosage: 2.3 MILLIGRAM
     Route: 048

REACTIONS (12)
  - Plasma cell myeloma [Unknown]
  - Peripheral swelling [Unknown]
  - Blood pressure decreased [Unknown]
  - Drug ineffective [Unknown]
  - Off label use [Unknown]
  - Pain in extremity [Unknown]
  - Back pain [Unknown]
  - Rash [Unknown]
  - Mucosal inflammation [Unknown]
  - Abdominal discomfort [Unknown]
  - Appetite disorder [Unknown]
  - Gastrointestinal toxicity [Unknown]
